FAERS Safety Report 26144134 (Version 2)
Quarter: 2025Q4

REPORT INFORMATION
  Report Type: Spontaneous
  Country: NZ (occurrence: NZ)
  Receive Date: 20251211
  Receipt Date: 20251224
  Transmission Date: 20260118
  Serious: Yes (Life-Threatening, Hospitalization, Other)
  Sender: RANBAXY
  Company Number: NZ-SUN PHARMACEUTICAL INDUSTRIES LTD-2025R1-540956

PATIENT
  Age: 23 Year
  Sex: Female

DRUGS (1)
  1. LAMOTRIGINE [Suspect]
     Active Substance: LAMOTRIGINE
     Indication: Epilepsy
     Dosage: UNK
     Route: 065

REACTIONS (1)
  - Generalised pustular psoriasis [Recovered/Resolved]
